FAERS Safety Report 7456841-X (Version None)
Quarter: 2011Q2

REPORT INFORMATION
  Report Type: 
  Country: None (occurrence: None)
  Receive Date: 20110504
  Receipt Date: 20110426
  Transmission Date: 20111010
  Serious: No
  Sender: FDA-Public Use
  Company Number: US-BIOGENIDEC-2011BI007656

PATIENT
  Age: 58 Year
  Sex: Female

DRUGS (1)
  1. TYSABRI [Suspect]
     Indication: MULTIPLE SCLEROSIS
     Route: 042
     Dates: start: 20070411

REACTIONS (4)
  - LYMPHADENOPATHY [None]
  - MONOCLONAL IMMUNOGLOBULIN PRESENT [None]
  - BLOOD IMMUNOGLOBULIN G INCREASED [None]
  - HYPERPLASIA [None]
